FAERS Safety Report 6818537-4 (Version None)
Quarter: 2010Q3

REPORT INFORMATION
  Report Type: 
  Country: None (occurrence: None)
  Receive Date: 20100706
  Receipt Date: 20081014
  Transmission Date: 20110219
  Serious: Yes (Other)
  Sender: FDA-Public Use
  Company Number: US-PFIZER INC-2008078836

PATIENT
  Sex: Female
  Weight: 23.7 kg

DRUGS (1)
  1. ZITHROMAX [Suspect]
     Indication: PHARYNGITIS
     Dates: start: 20080915, end: 20080917

REACTIONS (6)
  - ANGIOEDEMA [None]
  - GINGIVAL BLEEDING [None]
  - GINGIVAL SWELLING [None]
  - LYMPHOCYTE COUNT DECREASED [None]
  - OEDEMA [None]
  - STOMATITIS [None]
